FAERS Safety Report 24744604 (Version 2)
Quarter: 2025Q1

REPORT INFORMATION
  Report Type: Spontaneous
  Country: US (occurrence: US)
  Receive Date: 20241217
  Receipt Date: 20250115
  Transmission Date: 20250409
  Serious: No
  Sender: TRAVERE THERAPEUTICS
  Company Number: US-TRAVERE-2024TVT01216

PATIENT
  Age: 47 Year
  Sex: Female

DRUGS (2)
  1. FILSPARI [Suspect]
     Active Substance: SPARSENTAN
     Indication: IgA nephropathy
     Route: 048
     Dates: start: 20241118
  2. TARPEYO [Concomitant]
     Active Substance: BUDESONIDE

REACTIONS (8)
  - Somnolence [Unknown]
  - Dizziness [Unknown]
  - Presyncope [Unknown]
  - Visual impairment [Unknown]
  - Peripheral coldness [Unknown]
  - Dizziness postural [Unknown]
  - Blood pressure abnormal [Unknown]
  - Nausea [Unknown]

NARRATIVE: CASE EVENT DATE: 20241119
